FAERS Safety Report 17297788 (Version 1)
Quarter: 2020Q1

REPORT INFORMATION
  Report Type: Spontaneous
  Country: US (occurrence: US)
  Receive Date: 20200122
  Receipt Date: 20200122
  Transmission Date: 20200409
  Serious: No
  Sender: FDA-Public Use
  Company Number: US-GLENMARK PHARMACEUTICALS-2019GMK043368

PATIENT

DRUGS (1)
  1. ONDANSETRON ORALLY DISINTEGRATING TABLETS [Suspect]
     Active Substance: ONDANSETRON
     Indication: NAUSEA
     Dosage: 4 MG, (EVERY 4 TO 6 HOURS)
     Route: 048
     Dates: start: 20190919, end: 20190919

REACTIONS (2)
  - Migraine [Recovered/Resolved]
  - Product use in unapproved indication [Unknown]
